FAERS Safety Report 5207599-6 (Version None)
Quarter: 2007Q1

REPORT INFORMATION
  Report Type: 
  Country: None (occurrence: None)
  Receive Date: 20070112
  Receipt Date: 20070102
  Transmission Date: 20070707
  Serious: Yes (Other)
  Sender: FDA-Public Use
  Company Number: US-PFIZER INC-2007001367

PATIENT
  Sex: Female
  Weight: 56.7 kg

DRUGS (6)
  1. GEODON [Suspect]
     Dates: start: 20060501, end: 20061120
  2. LEVANXOL [Concomitant]
  3. VITAMIN CAP [Concomitant]
  4. VITAMIN B COMPLEX CAP [Concomitant]
  5. VITAMIN E [Concomitant]
  6. ASCORBIC ACID [Concomitant]

REACTIONS (7)
  - HYPOAESTHESIA [None]
  - NAUSEA [None]
  - NIGHT SWEATS [None]
  - PARAESTHESIA [None]
  - POOR QUALITY SLEEP [None]
  - PRURITUS [None]
  - SWOLLEN TONGUE [None]
